FAERS Safety Report 24281578 (Version 2)
Quarter: 2025Q1

REPORT INFORMATION
  Report Type: Spontaneous
  Country: US (occurrence: US)
  Receive Date: 20240904
  Receipt Date: 20250113
  Transmission Date: 20250409
  Serious: No
  Sender: UROGEN PHARMA
  Company Number: US-UROGEN PHARMA LTD.-2024-UGN-000099

PATIENT

DRUGS (6)
  1. JELMYTO [Suspect]
     Active Substance: MITOMYCIN
     Indication: Product used for unknown indication
     Route: 065
  2. JELMYTO [Suspect]
     Active Substance: MITOMYCIN
     Route: 065
  3. JELMYTO [Suspect]
     Active Substance: MITOMYCIN
     Route: 065
  4. JELMYTO [Suspect]
     Active Substance: MITOMYCIN
     Route: 065
  5. JELMYTO [Suspect]
     Active Substance: MITOMYCIN
     Route: 065
     Dates: start: 20240730, end: 20240730
  6. JELMYTO [Suspect]
     Active Substance: MITOMYCIN
     Route: 065

REACTIONS (5)
  - Urticaria [Not Recovered/Not Resolved]
  - Therapy partial responder [Unknown]
  - Rash [Recovered/Resolved]
  - Pruritus [Unknown]
  - Rash [Recovered/Resolved]

NARRATIVE: CASE EVENT DATE: 20240803
